FAERS Safety Report 6113009-7 (Version None)
Quarter: 2009Q1

REPORT INFORMATION
  Report Type: 
  Country: None (occurrence: None)
  Receive Date: 20090312
  Receipt Date: 20090305
  Transmission Date: 20090719
  Serious: Yes (Other)
  Sender: FDA-Public Use
  Company Number: B0558043A

PATIENT
  Age: 62 Year
  Sex: Female

DRUGS (9)
  1. AMOXICILLIN [Suspect]
     Route: 065
  2. PANTOPRAZOLE [Suspect]
     Route: 065
  3. CLARITHROMYCIN [Suspect]
     Route: 065
  4. ESOMEPRAZOLE [Concomitant]
  5. ENALAPRIL [Concomitant]
  6. OLMESARTAN MEDOXOMIL [Concomitant]
  7. LEVOTHYROXINE SODIUM [Concomitant]
  8. SIMVASTATIN [Concomitant]
  9. NITRO-SPRAY [Concomitant]

REACTIONS (13)
  - ABDOMINAL PAIN UPPER [None]
  - ANOREXIA [None]
  - DYSPEPSIA [None]
  - EOSINOPHILIA [None]
  - ERYTHEMA [None]
  - GASTRIC DISORDER [None]
  - GASTROENTERITIS EOSINOPHILIC [None]
  - ILL-DEFINED DISORDER [None]
  - MEMORY IMPAIRMENT [None]
  - MUCOSAL INFLAMMATION [None]
  - NAUSEA [None]
  - NEOPLASM [None]
  - OEDEMA MUCOSAL [None]
